FAERS Safety Report 4489212-9 (Version None)
Quarter: 2004Q4

REPORT INFORMATION
  Report Type: 
  Country: None (occurrence: None)
  Receive Date: 20041029
  Receipt Date: 20041018
  Transmission Date: 20050328
  Serious: Yes (Hospitalization)
  Sender: FDA-Public Use
  Company Number: FR-JNJFOC-20041005362

PATIENT
  Age: 50 Year
  Sex: Female

DRUGS (1)
  1. EPITOMAX [Suspect]
     Indication: NEUROPATHIC PAIN
     Route: 049

REACTIONS (2)
  - ANGLE CLOSURE GLAUCOMA [None]
  - CHOROIDAL DETACHMENT [None]
